FAERS Safety Report 8984550 (Version 1)
Quarter: 2012Q4

REPORT INFORMATION
  Report Type: 
  Country: US (occurrence: US)
  Receive Date: 20121226
  Receipt Date: 20121226
  Transmission Date: 20130627
  Serious: Yes (Other)
  Sender: FDA-Public Use
  Company Number: US-TEVA-377375USA

PATIENT
  Sex: Female

DRUGS (1)
  1. COPAXONE [Suspect]
     Dates: start: 20120714, end: 20120912

REACTIONS (3)
  - Loss of consciousness [Unknown]
  - Convulsion [Unknown]
  - Menstrual disorder [Unknown]
